FAERS Safety Report 8825532 (Version 1)
Quarter: 2012Q4

REPORT INFORMATION
  Report Type: 
  Country: US (occurrence: US)
  Receive Date: 20121004
  Receipt Date: 20121004
  Transmission Date: 20130627
  Serious: Yes (Hospitalization, Other)
  Sender: FDA-Public Use
  Company Number: US-009507513-0808USA02336

PATIENT

DRUGS (10)
  1. FOSAMAX [Suspect]
     Indication: OSTEOPOROSIS
     Dosage: 70 mg, QW
     Route: 048
     Dates: start: 20001106, end: 20050103
  2. FOSAMAX [Suspect]
     Indication: OSTEOPENIA
  3. PERCOCET [Concomitant]
     Indication: BACK PAIN
     Dates: start: 1984, end: 2005
  4. HORMONES (UNSPECIFIED) [Concomitant]
     Dates: start: 1958
  5. NORVASC [Concomitant]
     Indication: HYPERTENSION
     Dates: start: 1989
  6. LIPITOR [Concomitant]
     Indication: BLOOD CHOLESTEROL INCREASED
     Dates: start: 1989
  7. KLOR-CON [Concomitant]
     Dates: start: 1989
  8. KLONOPIN [Concomitant]
     Dates: start: 1989
  9. PROTONIX [Concomitant]
     Dates: start: 1989
  10. CARAFATE [Concomitant]
     Dates: start: 1989

REACTIONS (62)
  - Osteomyelitis [Unknown]
  - Arthropathy [Unknown]
  - Encephalitis [Unknown]
  - Pneumonia [Unknown]
  - Acinetobacter infection [Unknown]
  - Pneumonia [Unknown]
  - Urinary tract disorder [Unknown]
  - Surgery [Unknown]
  - Carpal tunnel decompression [Unknown]
  - Breast cyst excision [Unknown]
  - Open reduction of fracture [Unknown]
  - Lung disorder [Unknown]
  - Arthralgia [Unknown]
  - Osteonecrosis of jaw [Unknown]
  - Overdose [Unknown]
  - Asthma [Unknown]
  - Fracture nonunion [Unknown]
  - Type 2 diabetes mellitus [Recovered/Resolved]
  - Weight increased [Unknown]
  - Pneumonia aspiration [Unknown]
  - Pneumonia [Unknown]
  - Adverse drug reaction [Unknown]
  - Exostosis of jaw [Unknown]
  - Anxiety [Not Recovered/Not Resolved]
  - Sleep disorder [Unknown]
  - Asthma [Unknown]
  - Impaired healing [Unknown]
  - Gingival infection [Unknown]
  - Pharyngeal erythema [Unknown]
  - Chronic obstructive pulmonary disease [Not Recovered/Not Resolved]
  - Tendonitis [Unknown]
  - Pneumonia [Unknown]
  - Upper respiratory tract infection [Unknown]
  - Bronchitis [Unknown]
  - Hypokalaemia [Unknown]
  - Leukocytosis [Unknown]
  - Trigger finger [Unknown]
  - Device related infection [Unknown]
  - Migraine [Unknown]
  - Carpal tunnel syndrome [Unknown]
  - Breast cyst [Unknown]
  - Mobility decreased [Unknown]
  - VIIth nerve paralysis [Unknown]
  - Sciatica [Not Recovered/Not Resolved]
  - Rotator cuff syndrome [Unknown]
  - Hypoxia [Unknown]
  - Oxygen supplementation [Unknown]
  - Pain [Not Recovered/Not Resolved]
  - Anaemia [Not Recovered/Not Resolved]
  - Visual impairment [Unknown]
  - Adjustment disorder with mixed anxiety and depressed mood [Unknown]
  - Social problem [Unknown]
  - Ankle fracture [Not Recovered/Not Resolved]
  - Pyrexia [Unknown]
  - Pyrexia [Unknown]
  - Mouth ulceration [Unknown]
  - Drug hypersensitivity [Unknown]
  - Musculoskeletal pain [Unknown]
  - Vomiting [Unknown]
  - Hypocalcaemia [Unknown]
  - Headache [Unknown]
  - Urinary tract infection [Unknown]
